FAERS Safety Report 18953916 (Version 1)
Quarter: 2021Q1

REPORT INFORMATION
  Report Type: Spontaneous
  Country: IE (occurrence: IE)
  Receive Date: 20210301
  Receipt Date: 20210301
  Transmission Date: 20210420
  Serious: Yes (Other)
  Sender: FDA-Public Use
  Company Number: IE-NORTHSTAR HEALTHCARE HOLDINGS-IE-2021NSR000010

PATIENT
  Age: 46 Year
  Sex: Female

DRUGS (1)
  1. BACLOFEN. [Suspect]
     Active Substance: BACLOFEN
     Indication: ALCOHOL WITHDRAWAL SYNDROME
     Dosage: UNK
     Route: 065

REACTIONS (3)
  - Seizure [Unknown]
  - Overdose [Unknown]
  - Toxicity to various agents [Unknown]
